FAERS Safety Report 7518980-4 (Version None)
Quarter: 2011Q2

REPORT INFORMATION
  Report Type: 
  Country: None (occurrence: None)
  Receive Date: 20110602
  Receipt Date: 20110519
  Transmission Date: 20111010
  Serious: Yes (Disabling)
  Sender: FDA-Public Use
  Company Number: TH-GENENTECH-319355

PATIENT
  Age: 50 Year
  Sex: Female

DRUGS (3)
  1. ANTIHYPERTENSIVE DRUG NOS [Concomitant]
     Indication: PRODUCT USED FOR UNKNOWN INDICATION
  2. ANTIASTHMATICS [Concomitant]
     Indication: PRODUCT USED FOR UNKNOWN INDICATION
  3. XOLAIR [Suspect]
     Indication: ASTHMA
     Dosage: UNK
     Route: 058
     Dates: start: 20110301

REACTIONS (1)
  - DEAFNESS [None]
